FAERS Safety Report 8339746-1 (Version None)
Quarter: 2012Q2

REPORT INFORMATION
  Report Type: 
  Country: None (occurrence: None)
  Receive Date: 20120507
  Receipt Date: 20120501
  Transmission Date: 20120825
  Serious: Yes (Hospitalization)
  Sender: FDA-Public Use
  Company Number: US-BAYER-2012-043225

PATIENT
  Age: 21 Year
  Sex: Female
  Weight: 94.331 kg

DRUGS (5)
  1. GLUCOPHAGE [Concomitant]
     Dosage: 250 MG, BID
     Dates: start: 20041031, end: 20041101
  2. METFORMIN HCL [Concomitant]
     Dosage: UNK
     Dates: start: 20041101
  3. LORTAB [Concomitant]
  4. ASPIRIN [Concomitant]
     Indication: PAIN
     Dosage: TWO EVERY FOUR HOURS
     Dates: start: 20041031, end: 20041101
  5. YASMIN [Suspect]

REACTIONS (1)
  - DEEP VEIN THROMBOSIS [None]
